FAERS Safety Report 25623746 (Version 2)
Quarter: 2025Q3

REPORT INFORMATION
  Report Type: Spontaneous
  Country: US (occurrence: US)
  Receive Date: 20250730
  Receipt Date: 20250805
  Transmission Date: 20251020
  Serious: Yes (Hospitalization)
  Sender: ORGANON
  Company Number: US-ORGANON-O2507USA002440

PATIENT
  Sex: Female

DRUGS (3)
  1. MAXALT [Suspect]
     Active Substance: RIZATRIPTAN BENZOATE
     Indication: Migraine
     Dosage: 10 MILLIGRAM, PRN
     Route: 048
     Dates: start: 2022
  2. TYLENOL [Suspect]
     Active Substance: ACETAMINOPHEN
     Indication: Migraine
     Dosage: 500 MILLIGRAM, PRN
     Route: 048
     Dates: start: 2020
  3. TYLENOL [Suspect]
     Active Substance: ACETAMINOPHEN
     Dosage: 1000 MILLIGRAM, PRN
     Route: 048

REACTIONS (3)
  - Premature delivery [Recovered/Resolved]
  - Premature labour [Recovered/Resolved]
  - Maternal exposure during pregnancy [Recovered/Resolved]

NARRATIVE: CASE EVENT DATE: 20250322
